FAERS Safety Report 24349614 (Version 4)
Quarter: 2025Q4

REPORT INFORMATION
  Report Type: Report from Study
  Country: KR (occurrence: KR)
  Receive Date: 20240923
  Receipt Date: 20251010
  Transmission Date: 20260117
  Serious: Yes (Other)
  Sender: JAZZ
  Company Number: KR-BR-LTD-OS-401-029-002

PATIENT
  Age: 67 Year
  Sex: Female
  Weight: 40.6 kg

DRUGS (61)
  1. LURBINECTEDIN [Suspect]
     Active Substance: LURBINECTEDIN
     Indication: Product used for unknown indication
     Dosage: 1.9 MILLIGRAM/SQ. METER, Q3W (CYCLE 1 DAY 1)
     Dates: start: 20230731
  2. LURBINECTEDIN [Suspect]
     Active Substance: LURBINECTEDIN
     Dosage: 1.1 MILLIGRAM/SQ. METER
  3. LURBINECTEDIN [Suspect]
     Active Substance: LURBINECTEDIN
     Dosage: 1.4 MILLIGRAM/SQ. METER, Q3W (CYCLE 1 DAY 1)
     Dates: start: 20230920
  4. LURBINECTEDIN [Suspect]
     Active Substance: LURBINECTEDIN
     Dosage: 1.7 MILLIGRAM/SQ. METER, Q3W (CYCLE 1 DAY 1)
     Dates: start: 20231016, end: 20240125
  5. JANUVIA [Concomitant]
     Active Substance: SITAGLIPTIN PHOSPHATE
     Indication: Diabetes mellitus
     Dosage: 25 MILLIGRAM, QD
     Dates: start: 200901
  6. CRESTOR [Concomitant]
     Active Substance: ROSUVASTATIN CALCIUM
     Indication: Hyperlipidaemia
     Dosage: 10 MILLIGRAM, QD
     Dates: start: 20190312
  7. ULTRACET ER SEMI [Concomitant]
     Indication: Small cell lung cancer
     Dosage: 37.5 MILLIGRAM, TID
     Dates: start: 20220321
  8. BISOPROLOL FUMARATE [Concomitant]
     Active Substance: BISOPROLOL FUMARATE
     Indication: Prophylaxis
     Dosage: 1.25 MILLIGRAM, QD
     Dates: start: 20190317
  9. PREGREL [Concomitant]
     Indication: Prophylaxis
     Dosage: 75 MILLIGRAM, QD
     Dates: start: 20221006
  10. LYRICA [Concomitant]
     Active Substance: PREGABALIN
     Indication: Prophylaxis
     Dosage: 75 MILLIGRAM, QD
     Dates: start: 20220616
  11. DEXAMETHASONE [Concomitant]
     Active Substance: DEXAMETHASONE
     Indication: Prophylaxis
     Dosage: 5 MILLIGRAM, QD
     Dates: start: 20230731, end: 20230731
  12. DEXAMETHASONE [Concomitant]
     Active Substance: DEXAMETHASONE
     Dosage: 1 MILLILITER, QD
     Dates: start: 20230823
  13. DEXAMETHASONE [Concomitant]
     Active Substance: DEXAMETHASONE
     Dosage: 1 MILLILITER, QD
     Dates: start: 20230920
  14. DEXAMETHASONE [Concomitant]
     Active Substance: DEXAMETHASONE
     Dosage: 1 MILLILITER, QD
     Dates: start: 20231016
  15. DEXAMETHASONE [Concomitant]
     Active Substance: DEXAMETHASONE
     Dosage: 1 MILLILITER, QD
     Dates: start: 20231113
  16. DEXAMETHASONE [Concomitant]
     Active Substance: DEXAMETHASONE
     Dosage: 1 MILLILITER, QD
     Dates: start: 20231204
  17. DEXAMETHASONE [Concomitant]
     Active Substance: DEXAMETHASONE
     Dosage: 1 MILLILITER, QD
     Dates: start: 20231227
  18. DEXAMETHASONE [Concomitant]
     Active Substance: DEXAMETHASONE
     Dosage: 1 MILLILITER, QD
     Dates: start: 20240125
  19. DONGA ACETAMINOPHEN [Concomitant]
     Indication: Prophylaxis
     Dosage: 20 MILLIGRAM, QD
     Dates: start: 20230731, end: 20230731
  20. GLUCOPHAGE [Concomitant]
     Active Substance: METFORMIN HYDROCHLORIDE
     Indication: Diabetes mellitus
     Dosage: 250 MILLIGRAM, BID
  21. KANITRON [Concomitant]
     Indication: Prophylaxis
     Dosage: 3 MILLIGRAM, QD
     Dates: start: 20230731, end: 20230731
  22. PENIRAMIN [Concomitant]
     Indication: Prophylaxis
     Dosage: 2 MILLIGRAM, QD
     Dates: start: 20230731, end: 20230731
  23. PENIRAMIN [Concomitant]
     Dosage: 2 MILLILITER, QD
     Dates: start: 20230823, end: 20230823
  24. PENIRAMIN [Concomitant]
     Dosage: 2 MILLILITER, QD
     Dates: start: 20230920, end: 20230920
  25. PENIRAMIN [Concomitant]
     Dosage: 2 MILLILITER, QD
     Dates: start: 20231016, end: 20231016
  26. PENIRAMIN [Concomitant]
     Dosage: 2 MILLILITER, QD
     Dates: start: 20231113, end: 20231113
  27. PENIRAMIN [Concomitant]
     Dosage: 2 MILLILITER, QD
     Dates: start: 20231204, end: 20231204
  28. PENIRAMIN [Concomitant]
     Dosage: 4 MILLIGRAM, PRN
  29. TAMIPOOL [VITAMINS NOS] [Concomitant]
     Indication: Prophylaxis
     Dosage: 1 GRAM, PRN
     Dates: start: 20230731, end: 20230920
  30. VAITASOL [Concomitant]
     Indication: Prophylaxis
     Dosage: 230 MILLILITER, PRN
  31. CEFUROXIME [Concomitant]
     Active Substance: CEFUROXIME
     Indication: Prophylaxis
     Dosage: 250 MILLIGRAM, BID
     Dates: start: 20230810, end: 20230906
  32. DEXTROMETHORPHAN [Concomitant]
     Active Substance: DEXTROMETHORPHAN
     Indication: Prophylaxis
     Dosage: 20 MILLILITER, TID
     Dates: start: 20230920, end: 20231018
  33. HYDROCORTISONE [Concomitant]
     Active Substance: HYDROCORTISONE
     Indication: Prophylaxis
     Dosage: 20 ML/PRN
  34. FAMOTIDINE [Concomitant]
     Active Substance: FAMOTIDINE
     Indication: Prophylaxis
     Dosage: 10 MILLILITER, QD
     Dates: start: 20230823
  35. FAMOTIDINE [Concomitant]
     Active Substance: FAMOTIDINE
     Dosage: 10 MILLILITER, QD
     Dates: start: 20230920
  36. FAMOTIDINE [Concomitant]
     Active Substance: FAMOTIDINE
     Dosage: 10 MILLILITER, QD
     Dates: start: 20231016
  37. FAMOTIDINE [Concomitant]
     Active Substance: FAMOTIDINE
     Dosage: 10 MILLILITER, QD
     Dates: start: 20231113
  38. FAMOTIDINE [Concomitant]
     Active Substance: FAMOTIDINE
     Dosage: 10 MILLILITER, QD
     Dates: start: 20231204
  39. FAMOTIDINE [Concomitant]
     Active Substance: FAMOTIDINE
     Dosage: 10 MILLILITER, QD
     Dates: start: 20231227
  40. FAMOTIDINE [Concomitant]
     Active Substance: FAMOTIDINE
     Dosage: 10 MILLILITER, QD
     Dates: start: 20240125
  41. CHLORPHENIRAMINE MALEATE [Concomitant]
     Active Substance: CHLORPHENIRAMINE MALEATE
     Indication: Prophylaxis
     Dosage: 2 MILLILITER, QD
     Dates: start: 20230823
  42. CHLORPHENIRAMINE MALEATE [Concomitant]
     Active Substance: CHLORPHENIRAMINE MALEATE
     Dosage: 2 MILLILITER, QD
     Dates: start: 20230920
  43. CHLORPHENIRAMINE MALEATE [Concomitant]
     Active Substance: CHLORPHENIRAMINE MALEATE
     Dosage: 2 MILLILITER, QD
     Dates: start: 20231016
  44. CHLORPHENIRAMINE MALEATE [Concomitant]
     Active Substance: CHLORPHENIRAMINE MALEATE
     Dosage: 2 MILLILITER, QD
     Dates: start: 20231113
  45. CHLORPHENIRAMINE MALEATE [Concomitant]
     Active Substance: CHLORPHENIRAMINE MALEATE
     Dosage: 2 MILLILITER, QD
     Dates: start: 20231204
  46. GRANISETRON [Concomitant]
     Active Substance: GRANISETRON
     Indication: Prophylaxis
     Dosage: 3 MILLILITER, QD
     Dates: start: 20230823
  47. GRANISETRON [Concomitant]
     Active Substance: GRANISETRON
     Dosage: 3 MILLILITER, QD
     Dates: start: 20230920
  48. GRANISETRON [Concomitant]
     Active Substance: GRANISETRON
     Dosage: 3 MILLILITER, QD
     Dates: start: 20231016
  49. GRANISETRON [Concomitant]
     Active Substance: GRANISETRON
     Dosage: 3 MILLILITER, QD
     Dates: start: 20231113
  50. GRANISETRON [Concomitant]
     Active Substance: GRANISETRON
     Dosage: 3 MILLILITER, QD
     Dates: start: 20231204
  51. GRANISETRON [Concomitant]
     Active Substance: GRANISETRON
     Dosage: 3 MILLILITER, QD
     Dates: start: 20231227
  52. GRANISETRON [Concomitant]
     Active Substance: GRANISETRON
     Dosage: 3 MILLILITER, QD
     Dates: start: 20240125
  53. FILGRASTIM [Concomitant]
     Active Substance: FILGRASTIM
     Indication: Prophylaxis
     Dosage: 3.6 MILLILITER, QD
     Dates: start: 20230823
  54. FILGRASTIM [Concomitant]
     Active Substance: FILGRASTIM
     Dosage: 2.4 MILLILITER, QD
     Dates: start: 20230920
  55. FILGRASTIM [Concomitant]
     Active Substance: FILGRASTIM
     Dosage: 1.2 MILLILITER, QD
     Dates: start: 20231016
  56. FILGRASTIM [Concomitant]
     Active Substance: FILGRASTIM
     Dosage: 2.4 MILLILITER, QD
     Dates: start: 20231113
  57. FILGRASTIM [Concomitant]
     Active Substance: FILGRASTIM
     Dosage: 2.4 MILLILITER, QD
     Dates: start: 20231204
  58. FILGRASTIM [Concomitant]
     Active Substance: FILGRASTIM
     Dosage: 2.4 MILLILITER, QD
     Dates: start: 20231227
  59. FILGRASTIM [Concomitant]
     Active Substance: FILGRASTIM
     Dosage: 2.4 MILLILITER, QD
     Dates: start: 20240125
  60. ACETAMINOPHEN\TRAMADOL [Concomitant]
     Active Substance: ACETAMINOPHEN\TRAMADOL
     Indication: Small cell lung cancer
     Dosage: UNK
  61. PIOGLITAZONE [Concomitant]
     Active Substance: PIOGLITAZONE
     Indication: Diabetes mellitus
     Dosage: 15 MILLIGRAM, BID
     Dates: start: 20231113

REACTIONS (5)
  - Febrile neutropenia [Recovered/Resolved]
  - Pancytopenia [Recovered/Resolved]
  - Lethargy [Recovered/Resolved]
  - Neutrophil count decreased [Recovered/Resolved]
  - Cough [Not Recovered/Not Resolved]

NARRATIVE: CASE EVENT DATE: 20230810
